FAERS Safety Report 8225916-X (Version None)
Quarter: 2012Q1

REPORT INFORMATION
  Report Type: 
  Country: None (occurrence: None)
  Receive Date: 20120321
  Receipt Date: 20120308
  Transmission Date: 20120608
  Serious: Yes (Hospitalization)
  Sender: FDA-Public Use
  Company Number: JP-ROCHE-1029583

PATIENT
  Sex: Female
  Weight: 51 kg

DRUGS (4)
  1. MIRCERA [Suspect]
     Indication: NEPHROGENIC ANAEMIA
     Route: 058
     Dates: start: 20111022
  2. IMURAN [Suspect]
     Indication: RENAL TRANSPLANT
     Route: 048
     Dates: start: 20111022
  3. TETUCUR-S [Suspect]
     Indication: PRODUCT USED FOR UNKNOWN INDICATION
     Route: 048
     Dates: start: 20111022
  4. IRON SUCROSE [Suspect]
     Indication: PRODUCT USED FOR UNKNOWN INDICATION
     Route: 042
     Dates: start: 20111022

REACTIONS (1)
  - LIVER DISORDER [None]
